FAERS Safety Report 23242459 (Version 1)
Quarter: 2023Q4

REPORT INFORMATION
  Report Type: Spontaneous
  Country: BR (occurrence: BR)
  Receive Date: 20231129
  Receipt Date: 20231129
  Transmission Date: 20240110
  Serious: Yes (Life-Threatening, Other)
  Sender: FDA-Public Use
  Company Number: BR-002147023-NVSC2023BR251759

PATIENT

DRUGS (1)
  1. RUXOLITINIB [Suspect]
     Active Substance: RUXOLITINIB
     Indication: Malignant splenic neoplasm
     Dosage: 20 MG
     Route: 065

REACTIONS (6)
  - Fear of death [Unknown]
  - Product use in unapproved indication [Unknown]
  - General physical health deterioration [Unknown]
  - Malignant neoplasm progression [Unknown]
  - Malignant splenic neoplasm [Unknown]
  - Product distribution issue [Unknown]
